FAERS Safety Report 21361861 (Version 1)
Quarter: 2022Q3

REPORT INFORMATION
  Report Type: Spontaneous
  Country: CN (occurrence: None)
  Receive Date: 20220922
  Receipt Date: 20220922
  Transmission Date: 20221026
  Serious: Yes (Other)
  Sender: FDA-Public Use
  Company Number: CN-ROCHE-3183981

PATIENT
  Age: 33 Year
  Sex: Male

DRUGS (5)
  1. AVASTIN [Suspect]
     Active Substance: BEVACIZUMAB
     Indication: Anaplastic astrocytoma
     Dosage: WITH TEMOZOLOMIDE.
     Route: 065
     Dates: start: 202103
  2. AVASTIN [Suspect]
     Active Substance: BEVACIZUMAB
     Route: 065
     Dates: start: 202202
  3. TEMOZOLOMIDE [Concomitant]
     Active Substance: TEMOZOLOMIDE
     Indication: Anaplastic astrocytoma
     Dosage: WITH RADIOTHERAPY.
     Route: 048
     Dates: start: 202101
  4. TEMOZOLOMIDE [Concomitant]
     Active Substance: TEMOZOLOMIDE
     Dosage: WITH BEVACIZUMAB, 6 CYCLES.
     Route: 048
     Dates: start: 202103
  5. TEMOZOLOMIDE [Concomitant]
     Active Substance: TEMOZOLOMIDE
     Dosage: 6 CYCLES.
     Route: 048
     Dates: start: 202109

REACTIONS (2)
  - Tumour pseudoprogression [Unknown]
  - Off label use [Unknown]
